FAERS Safety Report 24383381 (Version 1)
Quarter: 2024Q4

REPORT INFORMATION
  Report Type: Report from Study
  Country: DO (occurrence: DO)
  Receive Date: 20241001
  Receipt Date: 20241001
  Transmission Date: 20250115
  Serious: Yes (Disabling)
  Sender: NOVARTIS
  Company Number: DO-002147023-NVSC2024DO192791

PATIENT
  Sex: Female

DRUGS (4)
  1. METFORMIN HYDROCHLORIDE\VILDAGLIPTIN [Suspect]
     Active Substance: METFORMIN HYDROCHLORIDE\VILDAGLIPTIN
     Indication: Diabetes mellitus
     Dosage: 50/1000MG, BID
     Route: 048
     Dates: start: 2013
  2. HYDROCHLOROTHIAZIDE\VALSARTAN [Suspect]
     Active Substance: HYDROCHLOROTHIAZIDE\VALSARTAN
     Indication: Hypertension
     Dosage: 160/12.5MG QD
     Route: 048
  3. HYDROCHLOROTHIAZIDE\VALSARTAN [Suspect]
     Active Substance: HYDROCHLOROTHIAZIDE\VALSARTAN
     Dosage: ? X 320/25MG, QD
     Route: 048
  4. DIOVAN [Suspect]
     Active Substance: VALSARTAN
     Indication: Hypertension
     Dosage: 80 MG, QD
     Route: 048
     Dates: start: 20240731

REACTIONS (4)
  - Peripheral swelling [Recovering/Resolving]
  - Liver disorder [Unknown]
  - Gait inability [Unknown]
  - Wrong technique in product usage process [Unknown]
